FAERS Safety Report 7935564-4 (Version None)
Quarter: 2011Q4

REPORT INFORMATION
  Report Type: 
  Country: None (occurrence: None)
  Receive Date: 20111123
  Receipt Date: 20111117
  Transmission Date: 20120403
  Serious: No
  Sender: FDA-Public Use
  Company Number: US-BIOGENIDEC-2011BI044020

PATIENT
  Sex: Female

DRUGS (1)
  1. AVONEX [Suspect]
     Indication: MULTIPLE SCLEROSIS
     Route: 030
     Dates: start: 20110429

REACTIONS (7)
  - FATIGUE [None]
  - DEPRESSION [None]
  - POOR QUALITY SLEEP [None]
  - MOOD SWINGS [None]
  - MEMORY IMPAIRMENT [None]
  - RHINORRHOEA [None]
  - INFLUENZA LIKE ILLNESS [None]
